FAERS Safety Report 12618334 (Version 1)
Quarter: 2016Q3

REPORT INFORMATION
  Report Type: Report from Study
  Country: GR (occurrence: GR)
  Receive Date: 20160803
  Receipt Date: 20160803
  Transmission Date: 20161109
  Serious: Yes (Death, Other)
  Sender: FDA-Public Use
  Company Number: GR-B.I. PHARMACEUTICALS,INC./RIDGEFIELD-2016-BI-48805BI

PATIENT
  Age: 6 Month
  Sex: Male

DRUGS (5)
  1. PERSANTIN [Suspect]
     Active Substance: DIPYRIDAMOLE
     Indication: KAWASAKI^S DISEASE
     Route: 065
  2. METHYLPREDNISOLONE. [Concomitant]
     Active Substance: METHYLPREDNISOLONE
     Indication: KAWASAKI^S DISEASE
     Dosage: STRENGTH AND DAILY DOSE: 30 MG/KG/DAY
     Route: 042
  3. GAMMA GLOBULIN [Concomitant]
     Active Substance: IMMUNE GLOBULIN NOS
     Indication: KAWASAKI^S DISEASE
     Route: 042
  4. INFLIXIMAB [Concomitant]
     Active Substance: INFLIXIMAB
     Indication: KAWASAKI^S DISEASE
     Dosage: STRENGTH: 5MG/KG
     Route: 065
  5. ABCIXIMAB [Concomitant]
     Active Substance: ABCIXIMAB
     Indication: KAWASAKI^S DISEASE
     Route: 065

REACTIONS (2)
  - Aneurysm ruptured [Fatal]
  - Cardio-respiratory arrest [Unknown]
